FAERS Safety Report 19256259 (Version 8)
Quarter: 2023Q1

REPORT INFORMATION
  Report Type: Report from Study
  Country: VN (occurrence: VN)
  Receive Date: 20210514
  Receipt Date: 20230327
  Transmission Date: 20230418
  Serious: Yes (Hospitalization)
  Sender: FDA-Public Use
  Company Number: NVSC2021VN093866

PATIENT
  Age: 29 Year
  Sex: Female

DRUGS (3)
  1. SECUKINUMAB [Suspect]
     Active Substance: SECUKINUMAB
     Indication: Hidradenitis
     Dosage: 300 MG, Q2W
     Route: 058
     Dates: start: 20210113
  2. UNSPECIFIED INGREDIENT [Suspect]
     Active Substance: UNSPECIFIED INGREDIENT
     Indication: Hidradenitis
     Dosage: NO TREATMENT
     Route: 065
  3. POVIDONE IOD [Concomitant]
     Indication: Hidradenitis
     Dosage: UNK
     Route: 065
     Dates: start: 20191211

REACTIONS (1)
  - Dermatitis infected [Recovered/Resolved]

NARRATIVE: CASE EVENT DATE: 20210426
